FAERS Safety Report 14579521 (Version 1)
Quarter: 2018Q1

REPORT INFORMATION
  Report Type: Spontaneous
  Country: US (occurrence: US)
  Receive Date: 20180227
  Receipt Date: 20180227
  Transmission Date: 20180509
  Serious: No
  Sender: FDA-Public Use
  Company Number: None

PATIENT
  Age: 59 Year
  Sex: Female
  Weight: 56.7 kg

DRUGS (10)
  1. BUPROPION HYDROCHLORIDE XL [Suspect]
     Active Substance: BUPROPION HYDROCHLORIDE
     Indication: EX-TOBACCO USER
     Route: 048
     Dates: start: 201705, end: 20180123
  2. XANAX [Concomitant]
     Active Substance: ALPRAZOLAM
  3. ALBUTEROL INHALER [Concomitant]
     Active Substance: ALBUTEROL
  4. IBUPROPHEN [Concomitant]
     Active Substance: IBUPROFEN
  5. NASAL ALLERGY SPRAY [Concomitant]
  6. BUPROPION HYDROCHLORIDE XL [Suspect]
     Active Substance: BUPROPION HYDROCHLORIDE
     Indication: DEPRESSION
     Route: 048
     Dates: start: 201705, end: 20180123
  7. TYLENOL [Concomitant]
     Active Substance: ACETAMINOPHEN
  8. SINGULAIR [Concomitant]
     Active Substance: MONTELUKAST SODIUM
  9. ZYRTEC [Concomitant]
     Active Substance: CETIRIZINE HYDROCHLORIDE
  10. MULTI-VIT (CENTRUM SILVER) [Concomitant]

REACTIONS (2)
  - Paraesthesia [None]
  - Withdrawal syndrome [None]

NARRATIVE: CASE EVENT DATE: 20180117
